FAERS Safety Report 5258390-6 (Version None)
Quarter: 2007Q1

REPORT INFORMATION
  Report Type: 
  Country: None (occurrence: None)
  Receive Date: 20061117
  Receipt Date: 20060428
  Transmission Date: 20070707
  Serious: Yes (Other)
  Sender: FDA-Public Use
  Company Number: US-JNJFOC-20060303781

PATIENT
  Age: 41 Year
  Sex: Female

DRUGS (8)
  1. LEVAQUIN [Suspect]
     Indication: INFECTION
     Dosage: 500 MG, 1 IN 1 DAY, ORAL
     Route: 048
     Dates: start: 20060312, end: 20060322
  2. COUMADIN [Suspect]
     Indication: ANTICOAGULANT THERAPY
     Dosage: 3.5 MG, 1 IN 1 DAY, ORAL
     Route: 048
  3. DEPAKOTE SPRINKLES (VALPROATE SEMISODIUM) [Concomitant]
  4. MIRALEX (MACROGOL) POWDER [Concomitant]
  5. PREVACID [Concomitant]
  6. ROBINUL (GLYCOPYRRONIUM BROMIDE) TABLETS [Concomitant]
  7. SYNTHROID (LEVOTHYROXINE SODIUM) TABLETS [Concomitant]
  8. LAMICTAL [Concomitant]

REACTIONS (2)
  - DRUG INTERACTION [None]
  - PROTHROMBIN TIME PROLONGED [None]
